FAERS Safety Report 19673686 (Version 1)
Quarter: 2021Q3

REPORT INFORMATION
  Report Type: Spontaneous
  Country: US (occurrence: US)
  Receive Date: 20210807
  Receipt Date: 20210807
  Transmission Date: 20211014
  Serious: No
  Sender: FDA-Public Use
  Company Number: None

PATIENT
  Age: 32 Year
  Sex: Male
  Weight: 136.8 kg

DRUGS (4)
  1. 0.9% NORMAL SALINE [Concomitant]
     Active Substance: SODIUM CHLORIDE
     Dates: start: 20210807, end: 20210807
  2. FAMOTIDINE. [Concomitant]
     Active Substance: FAMOTIDINE
     Dates: start: 20210807, end: 20210807
  3. RITUXAN [Suspect]
     Active Substance: RITUXIMAB
     Indication: GLOMERULONEPHRITIS MEMBRANOUS
     Dosage: ?          OTHER FREQUENCY:ONE A WEEK;?
     Dates: start: 20210807, end: 20210807
  4. BENADRYL [Concomitant]
     Active Substance: DIPHENHYDRAMINE HYDROCHLORIDE
     Dates: start: 20210807, end: 20210807

REACTIONS (4)
  - Throat irritation [None]
  - Infusion related reaction [None]
  - Pruritus [None]
  - Dysphagia [None]

NARRATIVE: CASE EVENT DATE: 20210807
